FAERS Safety Report 7145085-7 (Version None)
Quarter: 2010Q4

REPORT INFORMATION
  Report Type: 
  Country: None (occurrence: None)
  Receive Date: 20101208
  Receipt Date: 20101126
  Transmission Date: 20110411
  Serious: Yes (Other)
  Sender: FDA-Public Use
  Company Number: PHHY2010CH80991

PATIENT
  Sex: Female

DRUGS (6)
  1. ZOMETA [Suspect]
     Indication: METASTASES TO BONE
     Dosage: 4 MG, UNK
     Route: 042
     Dates: start: 20050101, end: 20070701
  2. AREDIA [Concomitant]
     Indication: METASTASES TO BONE
     Dosage: 60 MG, EVERY 6 MONTHS
     Route: 042
     Dates: start: 20070701
  3. HERCEPTIN [Concomitant]
     Indication: BREAST CANCER
     Dosage: UNK
  4. FEMARA [Concomitant]
     Indication: BREAST CANCER
     Dosage: 2.5 MG, UNK
  5. PREDNISONE [Concomitant]
     Dosage: 5 MG, UNK
  6. CELEBREX [Concomitant]
     Dosage: UNK

REACTIONS (2)
  - ORAL SURGERY [None]
  - OSTEONECROSIS OF JAW [None]
